FAERS Safety Report 14007094 (Version 2)
Quarter: 2017Q4

REPORT INFORMATION
  Report Type: Spontaneous
  Country: JP (occurrence: JP)
  Receive Date: 20170925
  Receipt Date: 20171005
  Transmission Date: 20180321
  Serious: Yes (Other)
  Sender: FDA-Public Use
  Company Number: JP-SUN PHARMACEUTICAL INDUSTRIES LTD-2017RR-150555

PATIENT
  Age: 78 Year
  Sex: Female

DRUGS (1)
  1. ALENDRONIC ACID [Suspect]
     Active Substance: ALENDRONIC ACID
     Indication: OSTEOPOROSIS
     Dosage: 35 MG, 1/WEEK
     Route: 048

REACTIONS (3)
  - Laryngeal ulceration [Recovered/Resolved with Sequelae]
  - Pharyngeal ulceration [Recovered/Resolved with Sequelae]
  - Wrong technique in product usage process [Recovered/Resolved with Sequelae]
